FAERS Safety Report 4906179-7 (Version None)
Quarter: 2006Q1

REPORT INFORMATION
  Report Type: 
  Country: None (occurrence: None)
  Receive Date: 20060207
  Receipt Date: 20060207
  Transmission Date: 20060701
  Serious: Yes (Hospitalization)
  Sender: FDA-Public Use
  Company Number: None

PATIENT
  Age: 66 Year
  Sex: Male
  Weight: 95.3 kg

DRUGS (12)
  1. TERAZOSIN [Suspect]
     Dosage: 1 MG QHS
     Dates: start: 20050805, end: 20051018
  2. OMEPRAZOLE [Concomitant]
  3. FINASTERIDE [Concomitant]
  4. METFORMIN HCL [Concomitant]
  5. NITROGLYCERIN [Concomitant]
  6. HYDROCODONE 7.5/ ACETAMINOPHEN [Concomitant]
  7. FELODIPINE [Concomitant]
  8. GLYBURIDE [Concomitant]
  9. RANITIDINE HCL [Concomitant]
  10. CLOTRIMAZOLE [Concomitant]
  11. METOPROLOL TARTRATE [Concomitant]
  12. GEMFIBROZIL [Concomitant]

REACTIONS (1)
  - SYNCOPE [None]
